FAERS Safety Report 7870621-2 (Version None)
Quarter: 2011Q4

REPORT INFORMATION
  Report Type: 
  Country: None (occurrence: None)
  Receive Date: 20111029
  Receipt Date: 20110218
  Transmission Date: 20120403
  Serious: No
  Sender: FDA-Public Use
  Company Number: US-AMGEN-USASP2011009738

PATIENT
  Age: 71 Year
  Sex: Female
  Weight: 79.83 kg

DRUGS (7)
  1. AMLODIPINE [Concomitant]
     Dosage: 5 MG, UNK
  2. FISH OIL [Concomitant]
     Dosage: UNK
  3. VITAMIN D [Concomitant]
     Dosage: 1000 UNIT, UNK
  4. ENBREL [Suspect]
     Indication: PRODUCT USED FOR UNKNOWN INDICATION
     Dosage: 50 MG, QWK
     Route: 058
  5. HYDROXYCHLOROQUINE SULFATE [Concomitant]
     Dosage: 200 MG, UNK
  6. LIPITOR [Concomitant]
     Dosage: 20 MG, UNK
  7. MULTI-VITAMINS [Suspect]
     Dosage: UNK

REACTIONS (1)
  - DIARRHOEA [None]
